FAERS Safety Report 7912935-3 (Version None)
Quarter: 2011Q4

REPORT INFORMATION
  Report Type: 
  Country: None (occurrence: None)
  Receive Date: 20111114
  Receipt Date: 20111101
  Transmission Date: 20120403
  Serious: No
  Sender: FDA-Public Use
  Company Number: US-B.I. PHARMACEUTICALS,INC./RIDGEFIELD-2011-BP-15739BP

PATIENT
  Sex: Female

DRUGS (17)
  1. ACTIGALL [Concomitant]
     Dosage: 300 MG
  2. PRADAXA [Suspect]
     Indication: ATRIAL FIBRILLATION
     Route: 048
     Dates: start: 20110501
  3. CALCIUM [Concomitant]
     Dosage: 750 MG
  4. LOMOTIL [Concomitant]
     Dosage: 2.5 MG
  5. FORTICAL [Concomitant]
  6. PRAVACHOL [Concomitant]
     Indication: BLOOD CHOLESTEROL INCREASED
     Dosage: 40 MG
  7. SYNTHROID [Concomitant]
     Dosage: 0.05 MG
  8. LASIX [Concomitant]
     Dosage: 40 MG
  9. MULTI-VITAMIN [Concomitant]
  10. LISINOPRIL [Concomitant]
     Dosage: 10 MG
  11. UNSPECIFIED HYPERTENSION MEDICATION [Concomitant]
     Indication: HYPERTENSION
  12. TOPROL-XL [Concomitant]
     Dosage: 100 MG
  13. CELEBREX [Concomitant]
     Dosage: 200 MG
  14. TRAVATAN [Concomitant]
     Indication: GLAUCOMA
     Dates: start: 20070101
  15. THISYLAN (SUPPLEMENT) [Concomitant]
     Indication: SUPPLEMENTATION THERAPY
  16. PREVACID [Concomitant]
     Dosage: 30 MG
  17. KLOR-CON [Concomitant]
     Dosage: 40 MG

REACTIONS (4)
  - INTRAOCULAR PRESSURE DECREASED [None]
  - HAEMATURIA [None]
  - EYE OPERATION COMPLICATION [None]
  - CLOSTRIDIAL INFECTION [None]
